FAERS Safety Report 14433874 (Version 1)
Quarter: 2018Q1

REPORT INFORMATION
  Report Type: Report from Study
  Country: CZ (occurrence: CZ)
  Receive Date: 20180124
  Receipt Date: 20180124
  Transmission Date: 20180509
  Serious: Yes (Other)
  Sender: FDA-Public Use
  Company Number: PHHY2017CZ177107

PATIENT
  Sex: Female

DRUGS (3)
  1. RETARPEN [Suspect]
     Active Substance: PENICILLIN G BENZATHINE
     Indication: PRODUCT USED FOR UNKNOWN INDICATION
     Dosage: UNK (ONLY 2 DOSES ADMINISTERED 94TH DAY OF GRAVIDITY)
     Route: 064
  2. RETARPEN [Suspect]
     Active Substance: PENICILLIN G BENZATHINE
     Dosage: UNK (ONLY 1 DOSE ADMINISTERED 2ND HALF OF GRAVIDITY)
     Route: 064
  3. PROCAINE PENICILLIN [Concomitant]
     Active Substance: PENICILLIN G PROCAINE
     Indication: PRODUCT USED FOR UNKNOWN INDICATION
     Dosage: UNK (1.5 MUI/DAY) FOR 21 DAYS
     Route: 064

REACTIONS (1)
  - Congenital syphilis [Recovered/Resolved]

NARRATIVE: CASE EVENT DATE: 20131117
